FAERS Safety Report 7562162-7 (Version None)
Quarter: 2011Q2

REPORT INFORMATION
  Report Type: 
  Country: None (occurrence: None)
  Receive Date: 20110614
  Receipt Date: 20110531
  Transmission Date: 20111010
  Serious: Yes (Hospitalization)
  Sender: FDA-Public Use
  Company Number: 2011MA006587

PATIENT
  Age: 37 Year
  Sex: Female

DRUGS (2)
  1. CHLORPROMAZINE HYDROCHLORIDE [Suspect]
     Indication: SCHIZOPHRENIA
     Dosage: 100 MG; HS;
  2. HALOPERIDOL [Concomitant]

REACTIONS (7)
  - TOOTH LOSS [None]
  - FALL [None]
  - MENINGITIS BACTERIAL [None]
  - SCHIZOPHRENIA, CATATONIC TYPE [None]
  - CEREBRAL MALARIA [None]
  - TARDIVE DYSKINESIA [None]
  - TETANUS [None]
